FAERS Safety Report 8523378 (Version 3)
Quarter: 2012Q4

REPORT INFORMATION
  Report Type: 
  Country: US (occurrence: US)
  Receive Date: 20120420
  Receipt Date: 20120917
  Transmission Date: 20130627
  Serious: Yes (Hospitalization)
  Sender: FDA-Public Use
  Company Number: US-BAYER-2012-035852

PATIENT
  Age: 40 Year
  Sex: Female
  Weight: 67.03 kg

DRUGS (18)
  1. YAZ [Suspect]
     Indication: MENSTRUATION IRREGULAR
     Dosage: UNK
     Dates: start: 200808, end: 200812
  2. YAZ [Suspect]
     Indication: MENORRHAGIA
  3. VITAMIN D [Concomitant]
  4. MULTI-VITAMIN [Concomitant]
  5. OXYCODONE/APAP [Concomitant]
     Dosage: 5-325 mg
  6. LEVAQUIN [Concomitant]
     Dosage: 500 mg, UNK
  7. CHERATUSSIN AC [Concomitant]
  8. AMOXICILLIN SODIUM W/CLAVULANATE POTASSIUM [Concomitant]
     Dosage: 875 mg, UNK
  9. AMOXICILLIN SODIUM W/CLAVULANATE POTASSIUM [Concomitant]
     Dosage: 875 mg, UNK
  10. PREDNISONE [Concomitant]
     Dosage: 20 mg, UNK
  11. RESPIRATORY SYSTEM [Concomitant]
     Dosage: 10 mg, UNK
  12. SYNTHROID [Concomitant]
     Dosage: 0.075 mg, UNK
  13. AMOXICILLIN [Concomitant]
     Indication: SINUSITIS
     Dosage: UNK UNK, BID
  14. AMOXICILLIN [Concomitant]
     Indication: SINUSITIS
     Dosage: 875 mg, UNK
  15. IRON [Concomitant]
  16. ADVIL [Concomitant]
     Dosage: UNK, UNK
  17. ADVIL [Concomitant]
     Dosage: UNK
  18. CLARITIN [Concomitant]

REACTIONS (5)
  - Pulmonary embolism [Recovered/Resolved]
  - Deep vein thrombosis [None]
  - Cholecystectomy [None]
  - Cholecystitis chronic [None]
  - Pain [None]
